FAERS Safety Report 24553616 (Version 1)
Quarter: 2024Q4

REPORT INFORMATION
  Report Type: Spontaneous
  Country: US (occurrence: US)
  Receive Date: 20241028
  Receipt Date: 20241028
  Transmission Date: 20250115
  Serious: No
  Sender: STRIDES
  Company Number: US-STRIDES ARCOLAB LIMITED-2023SP017382

PATIENT
  Sex: Male
  Weight: 126.98 kg

DRUGS (2)
  1. POTASSIUM CITRATE [Suspect]
     Active Substance: POTASSIUM CITRATE
     Indication: Renal lithiasis prophylaxis
     Dosage: 1 TABLETS, QID
     Route: 048
     Dates: start: 20231002
  2. POTASSIUM CITRATE [Suspect]
     Active Substance: POTASSIUM CITRATE
     Dosage: 1 TABLETS, QID
     Route: 048
     Dates: start: 20231002

REACTIONS (1)
  - Product residue present [Unknown]
